FAERS Safety Report 13438107 (Version 1)
Quarter: 2017Q2

REPORT INFORMATION
  Report Type: Spontaneous
  Country: US (occurrence: US)
  Receive Date: 20170412
  Receipt Date: 20170412
  Transmission Date: 20170830
  Serious: No
  Sender: FDA-Public Use
  Company Number: US-SA-2017SA043076

PATIENT
  Age: 22 Year
  Sex: Female

DRUGS (1)
  1. ALLEGRA [Suspect]
     Active Substance: FEXOFENADINE HYDROCHLORIDE
     Indication: HYPERSENSITIVITY
     Route: 048
     Dates: start: 20170310, end: 20170310

REACTIONS (3)
  - Fatigue [Unknown]
  - Swollen tongue [Unknown]
  - Pyrexia [Unknown]

NARRATIVE: CASE EVENT DATE: 20170310
